FAERS Safety Report 14776050 (Version 2)
Quarter: 2018Q2

REPORT INFORMATION
  Report Type: Report from Study
  Country: DE (occurrence: DE)
  Receive Date: 20180418
  Receipt Date: 20180425
  Transmission Date: 20180711
  Serious: Yes (Life-Threatening, Other)
  Sender: FDA-Public Use
  Company Number: DE-PFIZER INC-2018156891

PATIENT
  Age: 39 Year
  Sex: Male

DRUGS (8)
  1. OXAZEPAM. [Suspect]
     Active Substance: OXAZEPAM
     Dosage: UNK
  2. 3,4-METHYLENEDIOXYPYROVALERONE [Suspect]
     Active Substance: METHYLENEDIOXYPYROVALERONE HYDROCHLORIDE
     Dosage: UNK
  3. MIRTAZAPINE. [Suspect]
     Active Substance: MIRTAZAPINE
     Dosage: UNK
  4. OLANZAPINE. [Suspect]
     Active Substance: OLANZAPINE
     Dosage: UNK
  5. LORAZEPAM. [Suspect]
     Active Substance: LORAZEPAM
     Dosage: UNK
  6. TEMAZEPAM. [Suspect]
     Active Substance: TEMAZEPAM
     Dosage: UNK
  7. NORDAZEPAM [Suspect]
     Active Substance: NORDAZEPAM
     Dosage: UNK
  8. DIAZEPAM. [Suspect]
     Active Substance: DIAZEPAM
     Dosage: UNK

REACTIONS (6)
  - Aggression [Unknown]
  - Depression [Unknown]
  - Abnormal behaviour [Unknown]
  - Logorrhoea [Unknown]
  - Homicide [Unknown]
  - Toxicity to various agents [Unknown]
